FAERS Safety Report 18884194 (Version 1)
Quarter: 2021Q1

REPORT INFORMATION
  Report Type: Spontaneous
  Country: US (occurrence: US)
  Receive Date: 20210211
  Receipt Date: 20210211
  Transmission Date: 20210420
  Serious: No
  Sender: FDA-Public Use
  Company Number: US-ASTRAZENECA-2021A030479

PATIENT
  Age: 71 Year
  Sex: Female
  Weight: 65.8 kg

DRUGS (3)
  1. XELJANZ [Concomitant]
     Active Substance: TOFACITINIB CITRATE
     Indication: RHEUMATOID ARTHRITIS
     Route: 048
  2. TARCEVA [Concomitant]
     Active Substance: ERLOTINIB HYDROCHLORIDE
     Dosage: UNKNOWN
     Route: 065
  3. TAGRISSO [Suspect]
     Active Substance: OSIMERTINIB
     Indication: LUNG CARCINOMA CELL TYPE UNSPECIFIED STAGE IV
     Route: 048
     Dates: start: 20200304

REACTIONS (13)
  - Dry skin [Not Recovered/Not Resolved]
  - Mucosal inflammation [Unknown]
  - Alopecia [Unknown]
  - Dry mouth [Unknown]
  - Onychoclasis [Unknown]
  - Gastrooesophageal reflux disease [Unknown]
  - Muscle spasms [Unknown]
  - Nail bed tenderness [Unknown]
  - Hair texture abnormal [Unknown]
  - Nail bed bleeding [Unknown]
  - Alopecia [Not Recovered/Not Resolved]
  - Hair growth abnormal [Unknown]
  - Trichorrhexis [Unknown]

NARRATIVE: CASE EVENT DATE: 202012
